FAERS Safety Report 13618517 (Version 1)
Quarter: 2017Q2

REPORT INFORMATION
  Report Type: Spontaneous
  Country: MX (occurrence: MX)
  Receive Date: 20170606
  Receipt Date: 20170606
  Transmission Date: 20170830
  Serious: Yes (Hospitalization)
  Sender: FDA-Public Use
  Company Number: MX-SA-2017SA100244

PATIENT
  Sex: Male

DRUGS (2)
  1. TOUJEO [Suspect]
     Active Substance: INSULIN GLARGINE
     Route: 058
     Dates: start: 201705
  2. SOLOSTAR [Concomitant]
     Active Substance: DEVICE
     Dates: start: 201705

REACTIONS (1)
  - Haematuria [Not Recovered/Not Resolved]

NARRATIVE: CASE EVENT DATE: 20170528
